FAERS Safety Report 6971877-0 (Version None)
Quarter: 2010Q3

REPORT INFORMATION
  Report Type: 
  Country: None (occurrence: None)
  Receive Date: 20100908
  Receipt Date: 20100908
  Transmission Date: 20110219
  Serious: No
  Sender: FDA-Public Use
  Company Number: None

PATIENT
  Age: 50 Year
  Sex: Male

DRUGS (1)
  1. CIPRO [Suspect]
     Dosage: 400 MG ONCE IV PIGGBACK
     Route: 042
     Dates: start: 20100905, end: 20100905

REACTIONS (1)
  - PRURITUS [None]
